FAERS Safety Report 14995925 (Version 1)
Quarter: 2018Q2

REPORT INFORMATION
  Report Type: Report from Study
  Country: FR (occurrence: FR)
  Receive Date: 20180611
  Receipt Date: 20180611
  Transmission Date: 20180711
  Serious: Yes (Hospitalization)
  Sender: FDA-Public Use
  Company Number: FR-UNITED THERAPEUTICS-UNT-2018-007901

PATIENT

DRUGS (2)
  1. DINUTUXIMAB [Suspect]
     Active Substance: DINUTUXIMAB
     Indication: SMALL CELL LUNG CANCER
     Dosage: 28.6 MG, TOTAL DAILY DOSE, CYCLE 1
     Route: 041
     Dates: start: 20180601
  2. IRINOTECAN [Suspect]
     Active Substance: IRINOTECAN
     Indication: SMALL CELL LUNG CANCER
     Dosage: 626.5 MG, TOTAL DAILY DOSE, CYCLE 1
     Route: 041
     Dates: start: 20180601

REACTIONS (1)
  - Syncope [Not Recovered/Not Resolved]

NARRATIVE: CASE EVENT DATE: 20180601
